FAERS Safety Report 12471420 (Version 3)
Quarter: 2016Q3

REPORT INFORMATION
  Report Type: Report from Study
  Country: US (occurrence: US)
  Receive Date: 20160616
  Receipt Date: 20160704
  Transmission Date: 20161109
  Serious: Yes (Hospitalization, Other)
  Sender: FDA-Public Use
  Company Number: US-GILEAD-2016-0218749

PATIENT
  Age: 69 Year
  Sex: Female
  Weight: 73.92 kg

DRUGS (17)
  1. PROAIR HFA [Concomitant]
     Active Substance: ALBUTEROL SULFATE
  2. XALATAN [Concomitant]
     Active Substance: LATANOPROST
  3. MICRO-K [Concomitant]
     Active Substance: POTASSIUM CHLORIDE
  4. ZOCOR [Concomitant]
     Active Substance: SIMVASTATIN
  5. AMBRISENTAN [Suspect]
     Active Substance: AMBRISENTAN
     Indication: PULMONARY ARTERIAL HYPERTENSION
     Dosage: 5 MG, QD
     Route: 048
  6. DULERA [Concomitant]
     Active Substance: FORMOTEROL FUMARATE DIHYDRATE\MOMETASONE FUROATE
  7. MULTIVITAMIN                       /00097801/ [Concomitant]
     Active Substance: VITAMINS
  8. TRAZODONE [Concomitant]
     Active Substance: TRAZODONE HYDROCHLORIDE
  9. BYETTA [Concomitant]
     Active Substance: EXENATIDE
  10. LASIX [Concomitant]
     Active Substance: FUROSEMIDE
  11. COZAAR [Concomitant]
     Active Substance: LOSARTAN POTASSIUM
  12. TIMOLOL MALEATE. [Concomitant]
     Active Substance: TIMOLOL MALEATE
  13. DIABETA [Concomitant]
     Active Substance: GLYBURIDE
  14. ADCIRCA [Concomitant]
     Active Substance: TADALAFIL
  15. ELIQUIS [Concomitant]
     Active Substance: APIXABAN
  16. GLUCOPHAGE [Concomitant]
     Active Substance: METFORMIN HYDROCHLORIDE
  17. OXYGEN. [Concomitant]
     Active Substance: OXYGEN

REACTIONS (3)
  - Dyspnoea [Unknown]
  - Chronic respiratory failure [Not Recovered/Not Resolved]
  - Asthenia [Unknown]
